FAERS Safety Report 25192066 (Version 2)
Quarter: 2025Q2

REPORT INFORMATION
  Report Type: Spontaneous
  Country: US (occurrence: US)
  Receive Date: 20250414
  Receipt Date: 20250417
  Transmission Date: 20250717
  Serious: No
  Sender: HISAMITSU PHARM
  Company Number: US-HISAMITSU-2025-US-002493

PATIENT

DRUGS (1)
  1. SALONPAS PAIN RELIEF [Suspect]
     Active Substance: MENTHOL\METHYL SALICYLATE
     Indication: Analgesic therapy
     Route: 061
     Dates: start: 20250113, end: 202501

REACTIONS (2)
  - Drug ineffective [Recovered/Resolved]
  - Application site bruise [Unknown]

NARRATIVE: CASE EVENT DATE: 20250101
